FAERS Safety Report 14270286 (Version 1)
Quarter: 2017Q4

REPORT INFORMATION
  Report Type: Spontaneous
  Country: FR (occurrence: FR)
  Receive Date: 20171211
  Receipt Date: 20171211
  Transmission Date: 20180321
  Serious: Yes (Life-Threatening, Hospitalization, Other)
  Sender: FDA-Public Use
  Company Number: FR-OTSUKA-DJ20105591

PATIENT

DRUGS (2)
  1. ANXIOLYTIC NOS [Concomitant]
     Route: 065
  2. ABILIFY [Suspect]
     Active Substance: ARIPIPRAZOLE
     Indication: BIPOLAR DISORDER
     Route: 065

REACTIONS (2)
  - Urinary tract infection [Recovering/Resolving]
  - Neuroleptic malignant syndrome [Recovering/Resolving]
